FAERS Safety Report 18693957 (Version 2)
Quarter: 2021Q1

REPORT INFORMATION
  Report Type: Spontaneous
  Country: GB (occurrence: GB)
  Receive Date: 20210104
  Receipt Date: 20210107
  Transmission Date: 20210419
  Serious: Yes (Other)
  Sender: FDA-Public Use
  Company Number: GB-MYLANLABS-2020M1106688

PATIENT
  Sex: Female
  Weight: 56 kg

DRUGS (4)
  1. LIXIANA [Suspect]
     Active Substance: EDOXABAN TOSYLATE
     Dosage: UNK,(START DATE WAS 19 AUG)
  2. BISOPROLOL [Suspect]
     Active Substance: BISOPROLOL
     Indication: CARDIAC DISORDER
     Dosage: 2.5 MILLIGRAM, QD
     Dates: start: 20200710
  3. BISOPROLOL [Suspect]
     Active Substance: BISOPROLOL
     Dosage: UNK
     Dates: start: 20200710
  4. LIXIANA [Suspect]
     Active Substance: EDOXABAN TOSYLATE
     Indication: PRODUCT USED FOR UNKNOWN INDICATION
     Dosage: 30 MILLIGRAM, QD
     Dates: start: 20200819

REACTIONS (17)
  - Thyroid disorder [Unknown]
  - Drug ineffective [Unknown]
  - Capillary fragility [Unknown]
  - Dyspepsia [Unknown]
  - Abdominal discomfort [Unknown]
  - Weight decreased [Unknown]
  - Oropharyngeal pain [Unknown]
  - Arrhythmia [Unknown]
  - General physical health deterioration [Unknown]
  - Cardiac failure [Unknown]
  - Fatigue [Unknown]
  - Rhinorrhoea [Unknown]
  - Renal failure [Unknown]
  - Catarrh [Unknown]
  - Peripheral swelling [Unknown]
  - Asthenia [Unknown]
  - Pruritus [Unknown]

NARRATIVE: CASE EVENT DATE: 202012
